FAERS Safety Report 10197763 (Version 1)
Quarter: 2014Q2

REPORT INFORMATION
  Report Type: Spontaneous
  Country: DE (occurrence: DE)
  Receive Date: 20140527
  Receipt Date: 20140527
  Transmission Date: 20141212
  Serious: Yes (Hospitalization)
  Sender: FDA-Public Use
  Company Number: DE-ACTAVIS-2014-11102

PATIENT
  Age: 22 Year
  Sex: Male
  Weight: 106 kg

DRUGS (5)
  1. CITALOPRAM (UNKNOWN) [Suspect]
     Indication: DEPRESSION
     Dosage: 40 MG, DAILY
     Route: 065
  2. CITALOPRAM (UNKNOWN) [Suspect]
     Dosage: 60 MG, DAILY
     Route: 065
     Dates: start: 2012
  3. CITALOPRAM (UNKNOWN) [Suspect]
     Dosage: 20 MG, DAILY
     Route: 065
  4. SERTRALINE (UNKNOWN) [Suspect]
     Indication: DEPRESSION
     Dosage: 50 MG, DAILY
     Route: 065
  5. MIRTAZAPINE [Concomitant]
     Indication: DEPRESSION
     Dosage: 30 MG, DAILY
     Route: 065
     Dates: start: 201201

REACTIONS (3)
  - Psychotic disorder [Recovered/Resolved]
  - Overdose [Recovered/Resolved]
  - Incorrect dose administered [Recovered/Resolved]
